FAERS Safety Report 5086288-5 (Version None)
Quarter: 2006Q3

REPORT INFORMATION
  Report Type: 
  Country: None (occurrence: None)
  Receive Date: 20060821
  Receipt Date: 20060821
  Transmission Date: 20061208
  Serious: Yes (Life-Threatening, Hospitalization)
  Sender: FDA-Public Use
  Company Number: None

PATIENT
  Age: 28 Year
  Sex: Male
  Weight: 72.5755 kg

DRUGS (7)
  1. TRILEPTAL [Suspect]
     Indication: BIPOLAR I DISORDER
     Dosage: SEE IMAGE
     Route: 048
     Dates: start: 20060728, end: 20060808
  2. TRILEPTAL [Suspect]
     Indication: BIPOLAR I DISORDER
     Dosage: SEE IMAGE
     Route: 048
     Dates: start: 20060728, end: 20060808
  3. RISPERDAL [Concomitant]
  4. IBUPROFEN [Concomitant]
  5. ACETAMINOPHEN [Concomitant]
  6. LORAZEPAM [Concomitant]
  7. HALOPERIDOL [Concomitant]

REACTIONS (4)
  - ERYTHEMA [None]
  - PYREXIA [None]
  - RASH MACULAR [None]
  - RASH PAPULAR [None]
